FAERS Safety Report 8306663-2 (Version None)
Quarter: 2012Q2

REPORT INFORMATION
  Report Type: 
  Country: None (occurrence: None)
  Receive Date: 20120420
  Receipt Date: 20120405
  Transmission Date: 20120825
  Serious: Yes (Hospitalization)
  Sender: FDA-Public Use
  Company Number: ALK_02427_2012

PATIENT
  Age: 31 Year
  Sex: Male

DRUGS (1)
  1. VIVITROL [Suspect]
     Indication: PRODUCT USED FOR UNKNOWN INDICATION
     Dosage: (380 MG 1X/MONTH, INTRAMUSCULAR
     Route: 030

REACTIONS (1)
  - DRUG ABUSE [None]
